FAERS Safety Report 5297511-6 (Version None)
Quarter: 2007Q2

REPORT INFORMATION
  Report Type: 
  Country: None (occurrence: None)
  Receive Date: 20070416
  Receipt Date: 20070405
  Transmission Date: 20071010
  Serious: Yes (Hospitalization)
  Sender: FDA-Public Use
  Company Number: US-JNJFOC-20070401805

PATIENT
  Sex: Female
  Weight: 58.97 kg

DRUGS (6)
  1. DURAGESIC-100 [Suspect]
     Route: 062
  2. DURAGESIC-100 [Suspect]
     Indication: PAIN
     Route: 062
  3. OGEN [Concomitant]
     Indication: HORMONE REPLACEMENT THERAPY
     Route: 048
  4. PROVENTIL-HFA [Concomitant]
     Indication: ASTHMA
     Route: 055
  5. AZMACORT [Concomitant]
     Indication: ASTHMA
     Route: 055
  6. ATROVENT [Concomitant]
     Indication: ASTHMA
     Route: 055

REACTIONS (11)
  - ANAEMIA [None]
  - CONSTIPATION [None]
  - CORONARY ARTERY OCCLUSION [None]
  - DYSPEPSIA [None]
  - DYSPHAGIA [None]
  - EXTRASYSTOLES [None]
  - FAECALOMA [None]
  - INADEQUATE ANALGESIA [None]
  - INAPPROPRIATE SCHEDULE OF DRUG ADMINISTRATION [None]
  - PNEUMONIA [None]
  - WEIGHT DECREASED [None]
